FAERS Safety Report 6697076-8 (Version None)
Quarter: 2010Q2

REPORT INFORMATION
  Report Type: 
  Country: None (occurrence: None)
  Receive Date: 20100426
  Receipt Date: 20100415
  Transmission Date: 20101027
  Serious: Yes (Hospitalization, Other)
  Sender: FDA-Public Use
  Company Number: GB-JNJFOC-20100400140

PATIENT
  Sex: Male

DRUGS (2)
  1. CONCERTA [Suspect]
     Indication: AUTISM
     Route: 048
  2. CIRCADIN [Concomitant]
     Route: 048

REACTIONS (3)
  - OFF LABEL USE [None]
  - PHIMOSIS [None]
  - URTICARIA PIGMENTOSA [None]
